FAERS Safety Report 20662265 (Version 3)
Quarter: 2022Q2

REPORT INFORMATION
  Report Type: Report from Study
  Country: ZA (occurrence: ZA)
  Receive Date: 20220401
  Receipt Date: 20220406
  Transmission Date: 20220720
  Serious: Yes (Other)
  Sender: FDA-Public Use
  Company Number: ZA-NOVARTISPH-NVSC2022ZA064810

PATIENT
  Age: 84 Year
  Sex: Female

DRUGS (2)
  1. SIPONIMOD [Suspect]
     Active Substance: SIPONIMOD
     Indication: Relapsing multiple sclerosis
     Dosage: 2 MG, QD
     Route: 048
     Dates: start: 20220316, end: 20220322
  2. SIPONIMOD [Suspect]
     Active Substance: SIPONIMOD
     Indication: Secondary progressive multiple sclerosis

REACTIONS (8)
  - Blood pressure decreased [Unknown]
  - Heart rate increased [Unknown]
  - CSF protein increased [Unknown]
  - Multiple sclerosis [Unknown]
  - Dyskinesia [Unknown]
  - Abdominal discomfort [Unknown]
  - Headache [Unknown]
  - Tremor [Recovering/Resolving]

NARRATIVE: CASE EVENT DATE: 20220316
